FAERS Safety Report 21201202 (Version 1)
Quarter: 2022Q3

REPORT INFORMATION
  Report Type: Spontaneous
  Country: GB (occurrence: GB)
  Receive Date: 20220811
  Receipt Date: 20220811
  Transmission Date: 20221027
  Serious: Yes (Disabling, Other)
  Sender: FDA-Public Use
  Company Number: None

PATIENT
  Age: 5 Year
  Sex: Female
  Weight: 5.36 kg

DRUGS (6)
  1. MONTELUKAST [Suspect]
     Active Substance: MONTELUKAST SODIUM
     Indication: Product used for unknown indication
     Dosage: UNIT DOSE: 4 MG
     Route: 048
  2. CETIRIZINE [Concomitant]
     Active Substance: CETIRIZINE HYDROCHLORIDE
     Indication: Product used for unknown indication
     Dosage: 5 ML DAILY; UNIT DOSE : 2.5 ML, FREQUENCY ; 2, FREQUENCY TIME : 1 DAYS
     Dates: start: 20220629
  3. CLARITHROMYCIN [Concomitant]
     Active Substance: CLARITHROMYCIN
     Indication: Product used for unknown indication
     Dosage: 10 ML DAILY; UNIT DOSE : 5 ML, FREQUENCY ; 2, FREQUENCY TIME : 1 DAYS,THERAPY DURATION: 5 DAYS
     Dates: start: 20220526
  4. BECLOMETHASONE DIPROPIONATE [Concomitant]
     Active Substance: BECLOMETHASONE DIPROPIONATE
     Indication: Product used for unknown indication
     Dosage: 200 MICROGRAM DAILY; UNIT DOSE : 100 MICROGRAM, FREQUENCY ; 2, FREQUENCY TIME : 1 DAYS,
     Dates: start: 20220526
  5. BECLOMETHASONE DIPROPIONATE [Concomitant]
     Active Substance: BECLOMETHASONE DIPROPIONATE
     Dosage: 100 MICROGRAM DAILY; UNIT DOSE : 50 MICROGRAM, FREQUENCY ; 2, FREQUENCY TIME : 1 DAYS, THERAPY DURAT
     Route: 055
     Dates: start: 20220516, end: 20220526
  6. DERMOL [Concomitant]
     Active Substance: BENZALKONIUM CHLORIDE\CHLORHEXIDINE HYDROCHLORIDE\ISOPROPYL MYRISTATE\PARAFFIN
     Indication: Product used for unknown indication
     Dates: start: 20220722

REACTIONS (5)
  - Abnormal behaviour [Unknown]
  - Insomnia [Unknown]
  - Nausea [Unknown]
  - Decreased appetite [Unknown]
  - Rash [Recovered/Resolved]

NARRATIVE: CASE EVENT DATE: 20220719
